FAERS Safety Report 4273038-5 (Version None)
Quarter: 2004Q1

REPORT INFORMATION
  Report Type: 
  Country: None (occurrence: None)
  Receive Date: 20040114
  Receipt Date: 20031230
  Transmission Date: 20041129
  Serious: Yes (Other)
  Sender: FDA-Public Use
  Company Number: BLOC000292

PATIENT
  Age: 77 Year
  Sex: Female

DRUGS (5)
  1. MYOBLOC [Suspect]
     Indication: TORTICOLLIS
     Dosage: 8000 U  INTRAMUSCULAR
     Route: 030
     Dates: start: 20010515, end: 20010515
  2. KLONOPIN [Concomitant]
  3. AVAPRO [Concomitant]
  4. LEVSINEX (HYOSCYAMINE) [Concomitant]
  5. EXTRA STRENGTH TYLENOL [Concomitant]

REACTIONS (5)
  - DRUG INEFFECTIVE [None]
  - DRY MOUTH [None]
  - NAUSEA [None]
  - REFUSAL OF TREATMENT BY PATIENT [None]
  - WEIGHT DECREASED [None]
